FAERS Safety Report 4334945-8 (Version None)
Quarter: 2004Q2

REPORT INFORMATION
  Report Type: 
  Country: None (occurrence: None)
  Receive Date: 20040405
  Receipt Date: 20040324
  Transmission Date: 20050107
  Serious: Yes (Other)
  Sender: FDA-Public Use
  Company Number: 2004206089GB

PATIENT
  Age: 29 Year
  Sex: Female

DRUGS (1)
  1. DALACIN CREAM (CLINDAMYCIN) CREAM, VAGINAL [Suspect]
     Indication: INFECTION PROPHYLAXIS
     Dosage: VAGINAL
     Route: 067
     Dates: start: 20040319, end: 20040320

REACTIONS (4)
  - BLISTER [None]
  - ERYTHEMA [None]
  - SKIN INFLAMMATION [None]
  - THERMAL BURN [None]
